FAERS Safety Report 12101365 (Version 1)
Quarter: 2016Q1

REPORT INFORMATION
  Report Type: Report from Study
  Country: AU (occurrence: AU)
  Receive Date: 20160222
  Receipt Date: 20160222
  Transmission Date: 20160526
  Serious: Yes (Other)
  Sender: FDA-Public Use
  Company Number: AU-REGENERON PHARMACEUTICALS, INC.-2016-12375

PATIENT

DRUGS (1)
  1. EYLEA [Suspect]
     Active Substance: AFLIBERCEPT
     Indication: NEOVASCULAR AGE-RELATED MACULAR DEGENERATION
     Dosage: 2 MG, 5 WEEKS
     Route: 031
     Dates: start: 201410

REACTIONS (3)
  - Gastrointestinal carcinoma [Unknown]
  - Hernia repair [Unknown]
  - Glaucoma [Unknown]

NARRATIVE: CASE EVENT DATE: 2014
